FAERS Safety Report 9620814 (Version 2)
Quarter: 2013Q4

REPORT INFORMATION
  Report Type: Spontaneous
  Country: BE (occurrence: BE)
  Receive Date: 20131015
  Receipt Date: 20131015
  Transmission Date: 20140711
  Serious: Yes (Hospitalization, Other)
  Sender: FDA-Public Use
  Company Number: BE-BRISTOL-MYERS SQUIBB COMPANY-19251131

PATIENT
  Age: 72 Year
  Sex: Female

DRUGS (2)
  1. ORENCIA [Suspect]
     Indication: RHEUMATOID ARTHRITIS
     Dosage: STOPPED 18JUN13
     Route: 042
     Dates: start: 201111, end: 20130621
  2. METHOTREXATE [Suspect]
     Route: 048

REACTIONS (3)
  - Adrenal gland tuberculosis [Recovering/Resolving]
  - Adrenal insufficiency [Unknown]
  - Depression [Unknown]
